FAERS Safety Report 5760212-1 (Version None)
Quarter: 2008Q2

REPORT INFORMATION
  Report Type: 
  Country: None (occurrence: None)
  Receive Date: 20080602
  Receipt Date: 20080527
  Transmission Date: 20081010
  Serious: Yes (Hospitalization)
  Sender: FDA-Public Use
  Company Number: 2008SP003086

PATIENT
  Age: 69 Year
  Sex: Female
  Weight: 31.3 kg

DRUGS (10)
  1. TEMODAL [Suspect]
     Indication: METASTASES TO CENTRAL NERVOUS SYSTEM
     Dosage: 120 MG, QD, PO
     Route: 048
     Dates: start: 20071101, end: 20071106
  2. PANTOPRAZOLE SODIUM [Concomitant]
  3. RATIO-PENTOXIFYLLINE [Concomitant]
  4. OXYCONTIN [Concomitant]
  5. ASAPHEN [Concomitant]
  6. DEXAMETHASONE TAB [Concomitant]
  7. BISACODYL [Concomitant]
  8. COLACE [Concomitant]
  9. DOMPERIDONE [Concomitant]
  10. KEPPRA [Concomitant]

REACTIONS (2)
  - AGGRESSION [None]
  - CONFUSIONAL STATE [None]
